FAERS Safety Report 19904371 (Version 2)
Quarter: 2022Q3

REPORT INFORMATION
  Report Type: Spontaneous
  Country: CA (occurrence: CA)
  Receive Date: 20210930
  Receipt Date: 20220712
  Transmission Date: 20221026
  Serious: Yes (Other)
  Sender: FDA-Public Use
  Company Number: CA-GLAXOSMITHKLINE-CA2021AMR203577

PATIENT

DRUGS (4)
  1. TRELEGY ELLIPTA [Suspect]
     Active Substance: FLUTICASONE FUROATE\UMECLIDINIUM BROMIDE\VILANTEROL TRIFENATATE
     Indication: Product used for unknown indication
     Dosage: UNK
     Dates: start: 20201217, end: 20210219
  2. ADVAIR HFA [Suspect]
     Active Substance: FLUTICASONE PROPIONATE\SALMETEROL XINAFOATE
     Indication: Product used for unknown indication
     Dosage: UNK
  3. SPIRIVA RESPIMAT [Suspect]
     Active Substance: TIOTROPIUM BROMIDE
     Indication: Product used for unknown indication
     Dosage: UNK
  4. ATROVENT [Concomitant]
     Active Substance: IPRATROPIUM BROMIDE
     Indication: Product used for unknown indication
     Dosage: UNK

REACTIONS (7)
  - Atrial fibrillation [Unknown]
  - Sepsis [Unknown]
  - Pneumonia [Unknown]
  - Pyrexia [Unknown]
  - Cough [Unknown]
  - Secretion discharge [Unknown]
  - Chronic obstructive pulmonary disease [Unknown]

NARRATIVE: CASE EVENT DATE: 20201229
